FAERS Safety Report 7724531-1 (Version None)
Quarter: 2011Q3

REPORT INFORMATION
  Report Type: 
  Country: None (occurrence: None)
  Receive Date: 20110901
  Receipt Date: 20110824
  Transmission Date: 20111222
  Serious: Yes (Other)
  Sender: FDA-Public Use
  Company Number: US-AMGEN-USASP2011043423

PATIENT
  Age: 64 Year
  Sex: Female

DRUGS (1)
  1. ENBREL [Suspect]
     Indication: RHEUMATOID ARTHRITIS
     Dosage: 50 MG, QWK
     Dates: start: 20110720, end: 20110813

REACTIONS (5)
  - VISUAL IMPAIRMENT [None]
  - PAIN IN JAW [None]
  - DYSGEUSIA [None]
  - DISORIENTATION [None]
  - JAW DISORDER [None]
